FAERS Safety Report 24144410 (Version 1)
Quarter: 2024Q3

REPORT INFORMATION
  Report Type: Spontaneous
  Country: CN (occurrence: CN)
  Receive Date: 20240728
  Receipt Date: 20240728
  Transmission Date: 20241017
  Serious: Yes (Other)
  Sender: JOHNSON AND JOHNSON
  Company Number: CN-JNJFOC-20240755884

PATIENT
  Age: 61 Year
  Sex: Female

DRUGS (2)
  1. DARZALEX [Suspect]
     Active Substance: DARATUMUMAB
     Indication: Immune thrombocytopenia
     Route: 041
     Dates: start: 20240627, end: 20240627
  2. HEROMBOPAG OLAMINE [Concomitant]
     Indication: Immune thrombocytopenia
     Route: 048
     Dates: start: 20240629, end: 20240712

REACTIONS (9)
  - Asphyxia [Recovering/Resolving]
  - Hyperbilirubinaemia [Recovering/Resolving]
  - Infusion related reaction [Recovering/Resolving]
  - Erythema [Recovering/Resolving]
  - Swelling [Recovering/Resolving]
  - Palpitations [Recovering/Resolving]
  - Liver function test abnormal [Recovering/Resolving]
  - Pyrexia [Recovering/Resolving]
  - Off label use [Unknown]

NARRATIVE: CASE EVENT DATE: 20240628
